FAERS Safety Report 11927033 (Version 1)
Quarter: 2016Q1

REPORT INFORMATION
  Report Type: Spontaneous
  Country: US (occurrence: US)
  Receive Date: 20160119
  Receipt Date: 20160119
  Transmission Date: 20160526
  Serious: Yes (Hospitalization)
  Sender: FDA-Public Use
  Company Number: US-ACORDA-ACO_120523_2016

PATIENT
  Age: 53 Year
  Sex: Female

DRUGS (5)
  1. OXYCODONE [Concomitant]
     Active Substance: OXYCODONE
     Indication: PRODUCT USED FOR UNKNOWN INDICATION
     Dosage: UNK
     Dates: start: 2013
  2. LACTULOSE. [Concomitant]
     Active Substance: LACTULOSE
     Indication: PRODUCT USED FOR UNKNOWN INDICATION
     Dosage: UNK
  3. LEDIPASVIR W/SOFOSBUVIR [Suspect]
     Active Substance: LEDIPASVIR\SOFOSBUVIR
     Indication: CHRONIC HEPATITIS C
     Dosage: 1 DF, UNK
     Route: 048
     Dates: start: 20150304
  4. ZANAFLEX [Suspect]
     Active Substance: TIZANIDINE HYDROCHLORIDE
     Indication: MUSCLE SPASMS
     Dosage: UNK
     Route: 048
     Dates: start: 20141204, end: 20151206
  5. LASIX [Concomitant]
     Active Substance: FUROSEMIDE
     Indication: PRODUCT USED FOR UNKNOWN INDICATION
     Dosage: UNK
     Dates: start: 20150115

REACTIONS (39)
  - Post-traumatic pain [Unknown]
  - Abnormal faeces [Unknown]
  - Paranoia [Unknown]
  - Lower extremity mass [Unknown]
  - Palpitations [Not Recovered/Not Resolved]
  - Splenomegaly [Unknown]
  - Headache [Unknown]
  - Platelet count decreased [Unknown]
  - Muscular weakness [Unknown]
  - Weight decreased [Unknown]
  - Hepatic neoplasm [Unknown]
  - Exaggerated startle response [Unknown]
  - Confusional state [Unknown]
  - Hyperacusis [Unknown]
  - Heart rate increased [Unknown]
  - Arthralgia [Unknown]
  - Stress [Unknown]
  - Nausea [Recovered/Resolved]
  - Blood bilirubin increased [Unknown]
  - Weight increased [Unknown]
  - Crying [Unknown]
  - Myalgia [Unknown]
  - Depression [Unknown]
  - Dysphagia [Unknown]
  - Food craving [Unknown]
  - Hypertension [Unknown]
  - Fall [Recovered/Resolved]
  - Therapeutic response unexpected [Unknown]
  - Peripheral swelling [Unknown]
  - Memory impairment [Unknown]
  - Abnormal dreams [Unknown]
  - Nightmare [Unknown]
  - Insomnia [Unknown]
  - Muscle spasms [Unknown]
  - Fatigue [Unknown]
  - Large intestine polyp [Unknown]
  - Dyspnoea [Unknown]
  - Pain [Unknown]
  - Somnolence [Unknown]

NARRATIVE: CASE EVENT DATE: 201512
